FAERS Safety Report 5995745-6 (Version None)
Quarter: 2008Q4

REPORT INFORMATION
  Report Type: 
  Country: None (occurrence: None)
  Receive Date: 20081212
  Receipt Date: 20081203
  Transmission Date: 20090506
  Serious: Yes (Other)
  Sender: FDA-Public Use
  Company Number: GB-PFIZER INC-2008099253

PATIENT

DRUGS (7)
  1. AMLODIPINE BESYLATE [Suspect]
     Dosage: 10 MG, 1X/DAY
     Route: 048
  2. ARTHROTEC [Suspect]
     Route: 048
  3. QUINAPRIL HCL [Suspect]
     Route: 048
  4. SERTRALINE HCL [Suspect]
     Route: 048
  5. ACETAMINOPHEN W/ CODEINE [Suspect]
     Indication: PAIN
     Route: 048
  6. ALLOPURINOL [Suspect]
     Indication: GOUT
     Route: 048
  7. SIMVASTATIN [Concomitant]

REACTIONS (4)
  - BLOOD COUNT ABNORMAL [None]
  - HEPATIC FUNCTION ABNORMAL [None]
  - HEPATIC STEATOSIS [None]
  - WEIGHT DECREASED [None]
